FAERS Safety Report 4727531-9 (Version None)
Quarter: 2005Q3

REPORT INFORMATION
  Report Type: 
  Country: None (occurrence: None)
  Receive Date: 20050727
  Receipt Date: 20050727
  Transmission Date: 20060218
  Serious: Yes (Other)
  Sender: FDA-Public Use
  Company Number: None

PATIENT
  Age: 75 Year
  Sex: Male

DRUGS (1)
  1. EZETIMIBE 10MG [Suspect]
     Indication: HYPERLIPIDAEMIA
     Dosage: 10MG DAILY ORAL
     Route: 048

REACTIONS (2)
  - ARTHRALGIA [None]
  - GASTROINTESTINAL DISORDER [None]
